FAERS Safety Report 5946088-8 (Version None)
Quarter: 2008Q4

REPORT INFORMATION
  Report Type: 
  Country: None (occurrence: None)
  Receive Date: 20081110
  Receipt Date: 20081027
  Transmission Date: 20090506
  Serious: Yes (Other)
  Sender: FDA-Public Use
  Company Number: CA-ROCHE-588776

PATIENT
  Sex: Female
  Weight: 49.9 kg

DRUGS (1)
  1. ACCUTANE [Suspect]
     Indication: ACNE
     Dosage: DOSAGE REGIMEN REPORTED AS 1 X OD
     Route: 048
     Dates: start: 20080601, end: 20081001

REACTIONS (1)
  - GLIOMA [None]
